FAERS Safety Report 7270253-3 (Version None)
Quarter: 2011Q1

REPORT INFORMATION
  Report Type: 
  Country: None (occurrence: None)
  Receive Date: 20110125
  Receipt Date: 20110113
  Transmission Date: 20110831
  Serious: Yes (Hospitalization)
  Sender: FDA-Public Use
  Company Number: TCI2010A00636

PATIENT
  Age: 85 Year
  Sex: Female

DRUGS (7)
  1. LANSOPRAZOLE [Suspect]
     Indication: REFLUX OESOPHAGITIS
     Dosage: 15 MG (15 MG, 1 IN 1 D) PER ORAL; 15 MG 915 MG, 1 IN 1 D) PER ORAL; 15 MG (15 MG, 1 IN 1 D), PER ORA
     Route: 048
     Dates: start: 20060627
  2. LANSOPRAZOLE [Suspect]
     Indication: REFLUX OESOPHAGITIS
     Dosage: 15 MG (15 MG, 1 IN 1 D) PER ORAL; 15 MG 915 MG, 1 IN 1 D) PER ORAL; 15 MG (15 MG, 1 IN 1 D), PER ORA
     Route: 048
     Dates: start: 20070412, end: 20090713
  3. LANSOPRAZOLE [Suspect]
     Indication: REFLUX OESOPHAGITIS
     Dosage: 15 MG (15 MG, 1 IN 1 D) PER ORAL; 15 MG 915 MG, 1 IN 1 D) PER ORAL; 15 MG (15 MG, 1 IN 1 D), PER ORA
     Route: 048
     Dates: end: 20070405
  4. ROHYPNOL (FLUNITRAZEPAM) [Concomitant]
  5. VOLTAREN [Concomitant]
  6. HALCION [Concomitant]
  7. HERBRESSER R (DILTIAZEM HYDROCHLORIDE) [Concomitant]

REACTIONS (8)
  - DYSPEPSIA [None]
  - DRUG INEFFECTIVE [None]
  - DISEASE RECURRENCE [None]
  - HYPOALBUMINAEMIA [None]
  - COLITIS [None]
  - PROCTITIS [None]
  - COLITIS COLLAGENOUS [None]
  - ENTEROCOLITIS [None]
